FAERS Safety Report 19193819 (Version 1)
Quarter: 2021Q2

REPORT INFORMATION
  Report Type: Spontaneous
  Country: JP (occurrence: JP)
  Receive Date: 20210429
  Receipt Date: 20210429
  Transmission Date: 20210717
  Serious: Yes (Other)
  Sender: FDA-Public Use
  Company Number: NVSJ2019JP005424

PATIENT
  Age: 52 Year
  Sex: Female

DRUGS (4)
  1. TEGRETOL [Suspect]
     Active Substance: CARBAMAZEPINE
     Indication: BIPOLAR I DISORDER
     Dosage: UNK MG
     Route: 048
  2. RIZE [Suspect]
     Active Substance: CLOTIAZEPAM
     Indication: OBSESSIVE-COMPULSIVE DISORDER
     Dosage: 4 TO 5 TIMES A DAY
     Route: 048
  3. TEGRETOL [Suspect]
     Active Substance: CARBAMAZEPINE
     Dosage: UNK
     Route: 048
  4. TEGRETOL [Suspect]
     Active Substance: CARBAMAZEPINE
     Dosage: 400 MG OR 500 MG
     Route: 048

REACTIONS (7)
  - Gamma-glutamyltransferase abnormal [Unknown]
  - Mood swings [Unknown]
  - Palpitations [Unknown]
  - Dizziness [Unknown]
  - Hepatic neoplasm [Unknown]
  - Nausea [Unknown]
  - Somnolence [Unknown]
